FAERS Safety Report 7449083-5 (Version None)
Quarter: 2011Q2

REPORT INFORMATION
  Report Type: 
  Country: None (occurrence: None)
  Receive Date: 20110502
  Receipt Date: 20100116
  Transmission Date: 20111010
  Serious: Yes (Death, Other)
  Sender: FDA-Public Use
  Company Number: US-BAYER-201011480NA

PATIENT
  Age: 89 Year
  Sex: Female
  Weight: 54.1 kg

DRUGS (18)
  1. CLOPIDOGREL [Concomitant]
     Dosage: 75 MG, QD
     Route: 048
  2. HEPARIN [Concomitant]
     Dosage: ONE DOSE
     Dates: start: 20071109, end: 20071109
  3. VANCOMYCIN [Concomitant]
     Dosage: 2 G, UNK
     Route: 061
     Dates: end: 20071126
  4. FUROSEMIDE [FUROSEMIDE] [Concomitant]
     Dosage: 20 MG, UNK
     Route: 048
  5. HEPARIN [Concomitant]
     Dosage: 18,000 UNITS
     Dates: end: 20071126
  6. LEVOPHED [Concomitant]
     Dosage: UNK
     Dates: end: 20071126
  7. AMICAR [Concomitant]
     Dosage: UNK
     Dates: end: 20071126
  8. AMLODIPINE [Concomitant]
     Dosage: 10 MG, QD
     Route: 048
  9. TRASYLOL [Suspect]
     Indication: CORONARY ARTERY BYPASS
     Dates: start: 20071128
  10. SIMVASTATIN [Concomitant]
     Dosage: 20MG/Q PM
     Route: 048
  11. PHENYLEPHRINE [PHENYLEPHRINE] [Concomitant]
     Dosage: 100 MCG
     Dates: end: 20071126
  12. FUROSEMIDE [FUROSEMIDE] [Concomitant]
     Dosage: 15 MG, UNK
     Dates: end: 20071126
  13. ACETYLSALICYLIC ACID SRT [Concomitant]
     Dosage: 325 MG, QD
     Route: 048
  14. CEFAZOLIN [Concomitant]
     Dosage: 2 DOSES
     Route: 042
     Dates: start: 20071008, end: 20071009
  15. CEFAZOLIN [Concomitant]
     Dosage: 2GM/2GM
     Dates: end: 20071126
  16. DOPAMINE HCL [Concomitant]
     Dosage: UNK
     Dates: end: 20071126
  17. LISINOPRIL [Concomitant]
     Dosage: 40 MG, QD
     Route: 048
  18. RED BLOOD CELLS, CONCENTRATED [Concomitant]

REACTIONS (14)
  - ANXIETY [None]
  - ORGAN FAILURE [None]
  - FEAR [None]
  - ANHEDONIA [None]
  - CEREBROVASCULAR ACCIDENT [None]
  - PAIN [None]
  - DEPRESSION [None]
  - INJURY [None]
  - DEATH [None]
  - RENAL FAILURE [None]
  - RENAL INJURY [None]
  - CARDIAC DISORDER [None]
  - UNEVALUABLE EVENT [None]
  - RENAL IMPAIRMENT [None]
